FAERS Safety Report 9555749 (Version 1)
Quarter: 2013Q3

REPORT INFORMATION
  Report Type: Spontaneous
  Country: PT (occurrence: PT)
  Receive Date: 20130926
  Receipt Date: 20130926
  Transmission Date: 20140515
  Serious: Yes (Other)
  Sender: FDA-Public Use
  Company Number: PHHY2013PT106250

PATIENT
  Age: 55 Year
  Sex: Male

DRUGS (3)
  1. ZOMETA [Suspect]
     Indication: METASTASES TO BONE
     Dosage: 1 DF (VIAL), PER MONTH
     Route: 042
     Dates: start: 200712
  2. OMEPRAZOL//OMEPRAZOLE [Concomitant]
     Indication: BREAST CANCER
     Dosage: UNK UKN, UNK
     Route: 048
  3. LETROZOL [Concomitant]
     Indication: BREAST CANCER
     Dosage: UNK UKN, UNK
     Route: 048

REACTIONS (1)
  - Osteonecrosis of jaw [Recovering/Resolving]
